FAERS Safety Report 4650480-1 (Version None)
Quarter: 2005Q2

REPORT INFORMATION
  Report Type: 
  Country: None (occurrence: None)
  Receive Date: 20050502
  Receipt Date: 20050204
  Transmission Date: 20051028
  Serious: Yes (Hospitalization, Disabling)
  Sender: FDA-Public Use
  Company Number: US-MERCK-0502USA00669

PATIENT
  Age: 57 Year
  Sex: Male
  Weight: 95 kg

DRUGS (19)
  1. VIOXX [Suspect]
     Indication: RHEUMATOID ARTHRITIS
     Route: 048
     Dates: start: 20010503, end: 20040930
  2. VIOXX [Suspect]
     Route: 048
  3. VIOXX [Suspect]
     Route: 048
     Dates: start: 20000316, end: 20000608
  4. ENBREL [Concomitant]
     Indication: RHEUMATOID ARTHRITIS
     Route: 058
  5. METHOTREXATE [Concomitant]
     Indication: RHEUMATOID ARTHRITIS
     Route: 065
     Dates: start: 20000201
  6. PREDNISONE [Concomitant]
     Indication: RHEUMATOID ARTHRITIS
     Route: 065
  7. PREVACID [Concomitant]
     Route: 065
  8. PLENDIL [Concomitant]
     Indication: RAYNAUD'S PHENOMENON
     Route: 048
     Dates: start: 20020424
  9. FOLIC ACID [Concomitant]
     Route: 065
  10. VITAMIN B COMPLEX [Concomitant]
     Route: 065
  11. ACIPHEX [Concomitant]
     Indication: BARRETT'S OESOPHAGUS
     Route: 065
  12. ELAVIL [Concomitant]
     Indication: RHEUMATOID ARTHRITIS
     Route: 048
  13. ETIDRONATE DISODIUM [Concomitant]
     Indication: RHEUMATOID ARTHRITIS
     Route: 065
  14. ASPIRIN [Concomitant]
     Route: 065
  15. DIFLUCAN [Concomitant]
     Route: 065
  16. AVELOX [Concomitant]
     Route: 065
  17. VITAMIN D (UNSPECIFIED) [Concomitant]
     Route: 065
  18. PHENERGAN VC [Concomitant]
     Route: 065
  19. AMOXICILLIN [Concomitant]
     Route: 065

REACTIONS (11)
  - ACUTE MYOCARDIAL INFARCTION [None]
  - ANXIETY [None]
  - BARRETT'S OESOPHAGUS [None]
  - CORONARY ARTERY DISEASE [None]
  - DISTURBANCE IN ATTENTION [None]
  - DYSLIPIDAEMIA [None]
  - EMOTIONAL DISTRESS [None]
  - FATIGUE [None]
  - LIBIDO DECREASED [None]
  - PAIN [None]
  - SLEEP DISORDER [None]
